FAERS Safety Report 12414793 (Version 1)
Quarter: 2016Q2

REPORT INFORMATION
  Report Type: Spontaneous
  Country: ES (occurrence: ES)
  Receive Date: 20160529
  Receipt Date: 20160529
  Transmission Date: 20160815
  Serious: Yes (Life-Threatening, Hospitalization)
  Sender: FDA-Public Use
  Company Number: PHHY2016ES070559

PATIENT
  Sex: Male

DRUGS (5)
  1. ADVAGRAF [Suspect]
     Active Substance: TACROLIMUS
     Indication: LIVER TRANSPLANT
     Dosage: 2 MG, QD
     Route: 048
     Dates: start: 2005, end: 20160316
  2. MYFORTIC [Suspect]
     Active Substance: MYCOPHENOLATE SODIUM
     Indication: LIVER TRANSPLANT
     Dosage: 360 MG, BID
     Route: 065
     Dates: start: 2005, end: 20160316
  3. PARACETAMOL [Concomitant]
     Active Substance: ACETAMINOPHEN
     Indication: RESPIRATORY TRACT INFECTION VIRAL
     Dosage: UNK
     Route: 048
     Dates: start: 201603, end: 201603
  4. NOLOTIL [Concomitant]
     Active Substance: METAMIZOLE
     Indication: RESPIRATORY TRACT INFECTION VIRAL
     Dosage: UNK
     Route: 048
     Dates: start: 201603, end: 201603
  5. AMOXICILLIN AND CLAVULANATE POTASSIUM [Concomitant]
     Active Substance: AMOXICILLIN\CLAVULANATE POTASSIUM
     Indication: RESPIRATORY TRACT INFECTION VIRAL
     Dosage: UNK
     Route: 048
     Dates: start: 201603, end: 201603

REACTIONS (2)
  - Liver transplant rejection [Recovered/Resolved]
  - Food interaction [Recovered/Resolved]

NARRATIVE: CASE EVENT DATE: 20160314
